FAERS Safety Report 20149286 (Version 2)
Quarter: 2021Q4

REPORT INFORMATION
  Report Type: Spontaneous
  Country: AU (occurrence: AU)
  Receive Date: 20211205
  Receipt Date: 20211210
  Transmission Date: 20220303
  Serious: Yes (Other)
  Sender: FDA-Public Use
  Company Number: AU-NOVARTISPH-NVSC2021AU277653

PATIENT
  Sex: Male

DRUGS (3)
  1. RITALIN LA [Suspect]
     Active Substance: METHYLPHENIDATE HYDROCHLORIDE
     Indication: Product used for unknown indication
     Dosage: 40 MG, QD AT 8 AM
     Route: 065
  2. RITALIN LA [Suspect]
     Active Substance: METHYLPHENIDATE HYDROCHLORIDE
     Dosage: 20 MG, BID AT 12:30 PM
     Route: 065
  3. RITALIN LA [Suspect]
     Active Substance: METHYLPHENIDATE HYDROCHLORIDE
     Dosage: 60 MG
     Route: 065

REACTIONS (12)
  - Intellectual disability [Unknown]
  - Epilepsy [Unknown]
  - Muscular dystrophy [Unknown]
  - Attention deficit hyperactivity disorder [Unknown]
  - Blood pressure increased [Unknown]
  - Product use issue [Unknown]
  - Generalised anxiety disorder [Unknown]
  - Negativism [Unknown]
  - Ill-defined disorder [Unknown]
  - Depressed mood [Unknown]
  - Separation anxiety disorder [Unknown]
  - Hypertension [Unknown]
